FAERS Safety Report 9100899 (Version 2)
Quarter: 2013Q2

REPORT INFORMATION
  Report Type: Spontaneous
  Country: US (occurrence: US)
  Receive Date: 20130214
  Receipt Date: 20130514
  Transmission Date: 20140414
  Serious: Yes (Hospitalization)
  Sender: FDA-Public Use
  Company Number: US-BAYER-2013-018288

PATIENT
  Age: 19 Year
  Sex: Female
  Weight: 67.12 kg

DRUGS (8)
  1. COLACE [Concomitant]
     Dosage: 100 MG 1 TABLET BY MOUTH 2 TIMES A DAY
     Route: 048
  2. FERROUS SULFATE [Concomitant]
     Dosage: 325 MG ONE TABLET BY MOUTH 2 TIMES A DAY
     Route: 048
  3. YASMIN [Suspect]
     Dosage: UNK
     Dates: start: 2008, end: 2009
  4. OCELLA [Suspect]
     Dosage: UNK
     Dates: start: 2008, end: 2009
  5. YAZ [Suspect]
     Dosage: UNK
     Dates: start: 2008, end: 2009
  6. IRON [Concomitant]
     Indication: IRON DEFICIENCY
  7. TYLENOL [Concomitant]
  8. MIRALAX [Concomitant]
     Indication: CONSTIPATION
     Dosage: DAILY AS NEEDED
     Route: 048

REACTIONS (8)
  - Injury [Recovering/Resolving]
  - Anxiety [None]
  - Pain [Recovering/Resolving]
  - General physical health deterioration [Recovering/Resolving]
  - Emotional distress [None]
  - Pain [None]
  - Abdominal pain [None]
  - Pulmonary embolism [Recovering/Resolving]
